FAERS Safety Report 22031436 (Version 1)
Quarter: 2023Q1

REPORT INFORMATION
  Report Type: Spontaneous
  Country: US (occurrence: US)
  Receive Date: 20230224
  Receipt Date: 20230224
  Transmission Date: 20230417
  Serious: No
  Sender: FDA-Public Use
  Company Number: US-TOLMAR, INC.-23US038848

PATIENT
  Age: 42 Year
  Sex: Male

DRUGS (1)
  1. KETOCONAZOLE [Suspect]
     Active Substance: KETOCONAZOLE
     Indication: Androgenetic alopecia
     Dosage: UNK, EVERY 3-4 DAYS A WEEK
     Route: 003
     Dates: start: 202212, end: 202212

REACTIONS (2)
  - Off label use [Unknown]
  - Rash [Recovered/Resolved]

NARRATIVE: CASE EVENT DATE: 20221201
